FAERS Safety Report 25092105 (Version 1)
Quarter: 2025Q1

REPORT INFORMATION
  Report Type: Spontaneous
  Country: US (occurrence: US)
  Receive Date: 20250319
  Receipt Date: 20250319
  Transmission Date: 20250409
  Serious: Yes (Other)
  Sender: PFIZER
  Company Number: US-AstraZeneca-2024A150570

PATIENT
  Sex: Male

DRUGS (5)
  1. VYNDAMAX [Interacting]
     Active Substance: TAFAMIDIS
     Dosage: 61 MG, 1X/DAY
     Route: 048
     Dates: start: 20240619
  2. ROSUVASTATIN CALCIUM [Interacting]
     Active Substance: ROSUVASTATIN CALCIUM
     Indication: Product used for unknown indication
     Dosage: 20 MG, 1X/DAY
     Route: 048
  3. FARXIGA [Suspect]
     Active Substance: DAPAGLIFLOZIN PROPANEDIOL
     Route: 048
  4. ENTRESTO [Suspect]
     Active Substance: SACUBITRIL\VALSARTAN
     Indication: Product used for unknown indication
  5. COREG [Suspect]
     Active Substance: CARVEDILOL

REACTIONS (3)
  - Acquired ATTR amyloidosis [Unknown]
  - Cardiomyopathy [Unknown]
  - Drug interaction [Unknown]
